FAERS Safety Report 6232604-8 (Version None)
Quarter: 2009Q2

REPORT INFORMATION
  Report Type: 
  Country: None (occurrence: None)
  Receive Date: 20090615
  Receipt Date: 20090615
  Transmission Date: 20091009
  Serious: Yes (Life-Threatening, Other)
  Sender: FDA-Public Use
  Company Number: None

PATIENT
  Sex: Female
  Weight: 80.7403 kg

DRUGS (9)
  1. CYMBALTA [Suspect]
     Indication: ANXIETY
     Dosage: 150 MG ONCE DAILY ORAL
     Route: 048
     Dates: start: 20081201, end: 20081201
  2. CYMBALTA [Suspect]
     Indication: DEPRESSION
     Dosage: 150 MG ONCE DAILY ORAL
     Route: 048
     Dates: start: 20081201, end: 20081201
  3. CYMBALTA [Suspect]
     Indication: ANXIETY
     Dosage: 120 MG ONCE DAILY ORAL
     Route: 048
     Dates: start: 20081101, end: 20081111
  4. CYMBALTA [Suspect]
     Indication: DEPRESSION
     Dosage: 120 MG ONCE DAILY ORAL
     Route: 048
     Dates: start: 20081101, end: 20081111
  5. LYRICA [Concomitant]
  6. TOPAMAX [Concomitant]
  7. EFFEXOR XR [Concomitant]
  8. TRAZODONE HCL [Concomitant]
  9. FENTYMEL PATCH [Concomitant]

REACTIONS (5)
  - CONVULSION [None]
  - FATIGUE [None]
  - HEPATIC ENZYME INCREASED [None]
  - SUICIDAL IDEATION [None]
  - SUICIDE ATTEMPT [None]
